FAERS Safety Report 7556722-7 (Version None)
Quarter: 2011Q2

REPORT INFORMATION
  Report Type: 
  Country: None (occurrence: None)
  Receive Date: 20110616
  Receipt Date: 20110616
  Transmission Date: 20111010
  Serious: Yes (Hospitalization)
  Sender: FDA-Public Use
  Company Number: None

PATIENT
  Age: 31 Year
  Sex: Male
  Weight: 76.7 kg

DRUGS (1)
  1. AZATHIOPRINE [Suspect]
     Indication: CROHN'S DISEASE
     Dosage: 100 MG EVERY DAY PO
     Route: 048
     Dates: start: 20110418, end: 20110420

REACTIONS (3)
  - PARAESTHESIA [None]
  - VISION BLURRED [None]
  - CONFUSIONAL STATE [None]
